FAERS Safety Report 8397517-4 (Version None)
Quarter: 2012Q2

REPORT INFORMATION
  Report Type: 
  Country: None (occurrence: None)
  Receive Date: 20120529
  Receipt Date: 20120529
  Transmission Date: 20120825
  Serious: No
  Sender: FDA-Public Use
  Company Number: None

PATIENT
  Age: 58 Year
  Sex: Female
  Weight: 60.782 kg

DRUGS (1)
  1. FLUTICASONE PROPIONATE [Suspect]
     Indication: SINUSITIS
     Dosage: 2 SPRAYS PER NOSTRIL ONCE DAILY NASAL
     Route: 045
     Dates: start: 20120522, end: 20120523

REACTIONS (6)
  - EYELIDS PRURITUS [None]
  - EYELID OEDEMA [None]
  - ERYTHEMA OF EYELID [None]
  - PRURITUS [None]
  - ERYTHEMA [None]
  - RASH PUSTULAR [None]
